FAERS Safety Report 19823621 (Version 2)
Quarter: 2021Q3

REPORT INFORMATION
  Report Type: Spontaneous
  Country: GB (occurrence: GB)
  Receive Date: 20210913
  Receipt Date: 20210927
  Transmission Date: 20211014
  Serious: Yes (Other)
  Sender: FDA-Public Use
  Company Number: GB-MYLANLABS-2021M1054380

PATIENT
  Age: 86 Year
  Sex: Male

DRUGS (7)
  1. PAROXETINE. [Interacting]
     Active Substance: PAROXETINE
     Indication: DEPRESSION
     Dosage: 45 MILLIGRAM, QD
  2. LOSARTAN POTASSIUM. [Suspect]
     Active Substance: LOSARTAN POTASSIUM
     Indication: BLOOD PRESSURE MEASUREMENT
     Dosage: 50 MILLIGRAM, QD
  3. PAROXETINE. [Suspect]
     Active Substance: PAROXETINE
     Indication: ANXIETY
     Dosage: UNK
  4. RIVAROXABAN [Suspect]
     Active Substance: RIVAROXABAN
     Indication: PRODUCT USED FOR UNKNOWN INDICATION
     Dosage: 20 MILLIGRAM, QD
  5. LOSARTAN POTASSIUM. [Suspect]
     Active Substance: LOSARTAN POTASSIUM
     Indication: HEART RATE
     Dosage: UNK
  6. ZOPICLONE [Suspect]
     Active Substance: ZOPICLONE
     Indication: PRODUCT USED FOR UNKNOWN INDICATION
     Dosage: 3.75 MILLIGRAM, QD
  7. COMBODART [Interacting]
     Active Substance: DUTASTERIDE\TAMSULOSIN
     Indication: BENIGN PROSTATIC HYPERPLASIA
     Dosage: UNK
     Dates: start: 201202, end: 2021

REACTIONS (19)
  - Fatigue [Not Recovered/Not Resolved]
  - Asthenopia [Unknown]
  - Dizziness [Unknown]
  - Gait disturbance [Unknown]
  - Dyspnoea [Unknown]
  - Anaemia [Recovered/Resolved]
  - Condition aggravated [Unknown]
  - Urinary tract infection [Recovered/Resolved]
  - Palpitations [Unknown]
  - Joint swelling [Not Recovered/Not Resolved]
  - Hypoglycaemia [Recovered/Resolved]
  - Pulmonary embolism [Recovered/Resolved]
  - Deafness [Unknown]
  - Drug interaction [Unknown]
  - Anxiety [Not Recovered/Not Resolved]
  - Limb discomfort [Unknown]
  - Therapeutic product effect decreased [Unknown]
  - Peripheral swelling [Not Recovered/Not Resolved]
  - Eye swelling [Not Recovered/Not Resolved]

NARRATIVE: CASE EVENT DATE: 2017
